FAERS Safety Report 19499938 (Version 2)
Quarter: 2021Q3

REPORT INFORMATION
  Report Type: Report from Study
  Country: None (occurrence: AE)
  Receive Date: 20210707
  Receipt Date: 20210729
  Transmission Date: 20211014
  Serious: Yes (Other)
  Sender: FDA-Public Use
  Company Number: AE-ABBVIE-21K-166-3971384-00

PATIENT
  Age: 72 Year
  Sex: Male
  Weight: 90 kg

DRUGS (6)
  1. MOVICOL [Concomitant]
     Active Substance: POLYETHYLENE GLYCOL 3350\POTASSIUM CHLORIDE\SODIUM BICARBONATE\SODIUM CHLORIDE
     Indication: LAXATIVE SUPPORTIVE CARE
     Route: 048
     Dates: start: 20210630, end: 20210704
  2. ROTIGOTINE [Concomitant]
     Active Substance: ROTIGOTINE
     Indication: PARKINSON^S DISEASE
     Dosage: PATCH
     Route: 062
     Dates: start: 20210630
  3. DUODOPA [Suspect]
     Active Substance: CARBIDOPA\LEVODOPA
     Dosage: AM DOSE ? 20ML CONT. DOSE ? 6ML EXTRA DOSE ? 10ML 6PM PRIOR PHYSIOTHERAPY
     Route: 050
     Dates: start: 2021
  4. DUODOPA [Suspect]
     Active Substance: CARBIDOPA\LEVODOPA
     Indication: PARKINSON^S DISEASE
     Dosage: AM DOSE ? 20ML CONT. DOSE ? 4.5ML EXTRA DOSE ? 10ML 6PM PRIOR PHYSIOTHERAPY?20 MGML 5 MGML
     Route: 050
     Dates: start: 20210305, end: 2021
  5. MADOPAR [Concomitant]
     Active Substance: BENSERAZIDE HYDROCHLORIDE\LEVODOPA
     Indication: PARKINSON^S DISEASE
     Dosage: 100/25MG.?ONCE A DAY.
     Route: 048
     Dates: start: 20210305
  6. OPICAPONE [Concomitant]
     Active Substance: OPICAPONE
     Indication: PARKINSON^S DISEASE
     Route: 048
     Dates: start: 20210327

REACTIONS (4)
  - Bradykinesia [Recovered/Resolved]
  - Fatigue [Unknown]
  - Musculoskeletal stiffness [Recovered/Resolved]
  - C-reactive protein increased [Recovering/Resolving]

NARRATIVE: CASE EVENT DATE: 2021
